FAERS Safety Report 8757313 (Version 4)
Quarter: 2012Q4

REPORT INFORMATION
  Report Type: 
  Country: US (occurrence: US)
  Receive Date: 20120828
  Receipt Date: 20121212
  Transmission Date: 20130627
  Serious: Yes (Other)
  Sender: FDA-Public Use
  Company Number: US-PFIZER INC-2012208487

PATIENT
  Age: 73 Year
  Sex: Male
  Weight: 110 kg

DRUGS (8)
  1. TIKOSYN [Suspect]
     Indication: AFIB
     Dosage: 250 ug, 2x/day
     Route: 048
  2. TIKOSYN [Suspect]
     Dosage: 500 ug, 2x/day
     Route: 048
  3. COUMADIN [Concomitant]
     Dosage: UNK
  4. DIOVAN [Concomitant]
     Dosage: UNK
  5. LASIX [Concomitant]
     Dosage: UNK
  6. COREG [Concomitant]
     Dosage: UNK
  7. ASPIRIN [Concomitant]
     Dosage: UNK
  8. TIKOSYN [Suspect]
     Indication: PAROXYSMAL ATRIAL FLUTTER
     Dosage: 250 ug, unknown frequency
     Route: 048
     Dates: start: 20111027

REACTIONS (3)
  - Aortic stenosis [Unknown]
  - Coronary artery disease [Unknown]
  - Drug effect decreased [Unknown]
